FAERS Safety Report 9726582 (Version 3)
Quarter: 2013Q4

REPORT INFORMATION
  Report Type: Report from Study
  Country: GB (occurrence: GB)
  Receive Date: 20131203
  Receipt Date: 20131213
  Transmission Date: 20140711
  Serious: Yes (Hospitalization)
  Sender: FDA-Public Use
  Company Number: GB-GLAXOSMITHKLINE-B0916593B

PATIENT
  Age: 29 Year
  Sex: Female
  Weight: 47.7 kg

DRUGS (9)
  1. DABRAFENIB [Suspect]
     Indication: METASTATIC MALIGNANT MELANOMA
     Dosage: 100MG TWICE PER DAY
     Route: 048
     Dates: start: 20130605
  2. TRAMETINIB [Suspect]
     Indication: METASTATIC MALIGNANT MELANOMA
     Route: 048
     Dates: start: 20130605
  3. AMLODIPINE [Concomitant]
     Indication: HYPERTENSION
     Dosage: 5MG PER DAY
     Route: 048
     Dates: start: 201308
  4. CLOBAZAM [Concomitant]
     Indication: EPILEPSY
     Route: 048
     Dates: start: 201306
  5. CLOTRIMAZOLE [Concomitant]
     Indication: CANDIDA INFECTION
     Dosage: 1PCT THREE TIMES PER DAY
     Dates: start: 20131108
  6. LEVETIRACETAM [Concomitant]
     Indication: EPILEPSY
     Dosage: 500MG TWICE PER DAY
     Route: 048
     Dates: start: 201306
  7. METOCLOPRAMIDE [Concomitant]
     Dosage: 10MG THREE TIMES PER DAY
     Route: 048
     Dates: start: 201308
  8. OMEPRAZOLE [Concomitant]
     Indication: PROPHYLAXIS
     Dosage: 40MG PER DAY
     Route: 048
     Dates: start: 201308
  9. PARACETAMOL [Concomitant]
     Indication: PAIN
     Dosage: 500MG AS REQUIRED
     Route: 048

REACTIONS (2)
  - Pyrexia [Recovered/Resolved]
  - Abdominal pain [Recovering/Resolving]
